FAERS Safety Report 6832088-2 (Version None)
Quarter: 2010Q3

REPORT INFORMATION
  Report Type: 
  Country: None (occurrence: None)
  Receive Date: 20100712
  Receipt Date: 20100630
  Transmission Date: 20110219
  Serious: Yes (Other)
  Sender: FDA-Public Use
  Company Number: JP-ROCHE-713814

PATIENT
  Sex: Male
  Weight: 68.5 kg

DRUGS (17)
  1. TOCILIZUMAB [Suspect]
     Indication: CASTLEMAN'S DISEASE
     Route: 041
     Dates: start: 20090326, end: 20090407
  2. TOCILIZUMAB [Suspect]
     Route: 041
     Dates: start: 20090421, end: 20090501
  3. TOCILIZUMAB [Suspect]
     Route: 041
     Dates: start: 20090515, end: 20090529
  4. TOCILIZUMAB [Suspect]
     Route: 041
     Dates: start: 20090608, end: 20090608
  5. TOCILIZUMAB [Suspect]
     Route: 041
     Dates: start: 20090619, end: 20090629
  6. TOCILIZUMAB [Suspect]
     Route: 041
     Dates: start: 20090804, end: 20090818
  7. TOCILIZUMAB [Suspect]
     Route: 041
     Dates: start: 20090828, end: 20090929
  8. TOCILIZUMAB [Suspect]
     Route: 041
     Dates: start: 20091015, end: 20091113
  9. TOCILIZUMAB [Suspect]
     Route: 041
     Dates: start: 20091124, end: 20100105
  10. TOCILIZUMAB [Suspect]
     Route: 041
     Dates: start: 20100122, end: 20100205
  11. TOCILIZUMAB [Suspect]
     Route: 041
     Dates: start: 20100223
  12. PREDONINE [Suspect]
     Indication: CASTLEMAN'S DISEASE
     Dosage: FORM: PERORAL AGENT.
     Route: 048
     Dates: start: 20090501, end: 20090528
  13. PREDONINE [Suspect]
     Route: 048
     Dates: start: 20090529, end: 20090803
  14. PREDONINE [Suspect]
     Route: 048
     Dates: start: 20090804, end: 20090827
  15. PREDONINE [Suspect]
     Route: 048
     Dates: start: 20090828
  16. ISCOTIN [Concomitant]
     Route: 048
     Dates: start: 20090320
  17. PYDOXAL [Concomitant]
     Dosage: FORM: PERORAL AGENT
     Route: 048
     Dates: start: 20090320

REACTIONS (2)
  - HYPERTENSION [None]
  - LYMPHOCYTE COUNT DECREASED [None]
